FAERS Safety Report 5921580-0 (Version None)
Quarter: 2008Q3

REPORT INFORMATION
  Report Type: 
  Country: None (occurrence: None)
  Receive Date: 20080909
  Receipt Date: 20080512
  Transmission Date: 20090109
  Serious: Yes (Hospitalization)
  Sender: FDA-Public Use
  Company Number: 163-20785-08032008

PATIENT
  Age: 74 Year
  Sex: Male

DRUGS (3)
  1. THALOMID [Suspect]
     Indication: MULTIPLE MYELOMA
     Dosage: 50 MG, AT BEDTIME, ORAL
     Route: 048
     Dates: start: 20080318, end: 20080401
  2. THALOMID [Suspect]
  3. ALKERAN (MELPHALAN) (2 MILLIGRAM) [Concomitant]

REACTIONS (4)
  - DECREASED APPETITE [None]
  - PARAESTHESIA [None]
  - PYREXIA [None]
  - URINARY INCONTINENCE [None]
